FAERS Safety Report 7521942-4 (Version None)
Quarter: 2011Q2

REPORT INFORMATION
  Report Type: 
  Country: None (occurrence: None)
  Receive Date: 20110603
  Receipt Date: 20110520
  Transmission Date: 20111010
  Serious: Yes (Hospitalization)
  Sender: FDA-Public Use
  Company Number: FR-ELI_LILLY_AND_COMPANY-FR201011006972

PATIENT
  Age: 51 Year
  Sex: Female

DRUGS (5)
  1. FORTEO [Suspect]
     Indication: OSTEOPOROSIS
     Dosage: 20 UG, DAILY (1/D)
     Route: 058
     Dates: start: 20100603
  2. BETAFERON [Concomitant]
  3. CACIT D3 [Concomitant]
  4. MIRTAZAPINE [Concomitant]
  5. TERCIAN [Concomitant]

REACTIONS (4)
  - URINARY RETENTION [None]
  - VITAMIN D DEFICIENCY [None]
  - BURNING SENSATION [None]
  - BLOOD CALCIUM ABNORMAL [None]
